FAERS Safety Report 24648087 (Version 5)
Quarter: 2025Q1

REPORT INFORMATION
  Report Type: Spontaneous
  Country: US (occurrence: US)
  Receive Date: 20241121
  Receipt Date: 20250328
  Transmission Date: 20250409
  Serious: No
  Sender: SANDOZ
  Company Number: US-SANDOZ-SDZ2024US096934

PATIENT
  Sex: Female

DRUGS (4)
  1. VIVELLE-DOT [Suspect]
     Active Substance: ESTRADIOL
     Indication: Product used for unknown indication
     Dosage: 0.1 MG, TWICE WEEKLY, 0.1MG/1D 8TTS V1 US
     Route: 062
  2. LOSARTAN [Concomitant]
     Active Substance: LOSARTAN
     Indication: Product used for unknown indication
     Route: 065
  3. Propylthiourac [Concomitant]
     Indication: Product used for unknown indication
     Route: 065
  4. SOTALOL [Concomitant]
     Active Substance: SOTALOL
     Indication: Product used for unknown indication
     Route: 065

REACTIONS (4)
  - Application site pruritus [Unknown]
  - Application site erythema [Unknown]
  - Product physical issue [Unknown]
  - Product adhesion issue [Unknown]
